FAERS Safety Report 9620276 (Version 1)
Quarter: 2013Q4

REPORT INFORMATION
  Report Type: Spontaneous
  Country: US (occurrence: US)
  Receive Date: 20131014
  Receipt Date: 20131014
  Transmission Date: 20140711
  Serious: No
  Sender: FDA-Public Use
  Company Number: US-ALLERGAN-1305396US

PATIENT
  Age: 70 Year
  Sex: Female

DRUGS (3)
  1. ALPHAGAN P [Suspect]
     Indication: GLAUCOMA
     Dosage: 2 GTT, TID
     Route: 047
     Dates: start: 2009, end: 20130410
  2. TRAVATAN Z [Suspect]
     Indication: GLAUCOMA
     Dosage: UNK
     Dates: start: 201301, end: 20130410
  3. PREMPRO [Concomitant]
     Indication: HORMONE REPLACEMENT THERAPY
     Dosage: UNK
     Dates: start: 2006

REACTIONS (2)
  - Erythema [Recovered/Resolved]
  - Ocular hyperaemia [Recovered/Resolved]
